FAERS Safety Report 21385491 (Version 2)
Quarter: 2022Q4

REPORT INFORMATION
  Report Type: Report from Study
  Country: US (occurrence: US)
  Receive Date: 20220928
  Receipt Date: 20221221
  Transmission Date: 20230112
  Serious: Yes (Other)
  Sender: FDA-Public Use
  Company Number: US-UCBSA-2022056633

PATIENT
  Age: 80 Year
  Sex: Female

DRUGS (1)
  1. CERTOLIZUMAB PEGOL [Suspect]
     Active Substance: CERTOLIZUMAB PEGOL
     Indication: Rheumatoid arthritis
     Dosage: 400 MILLIGRAM, EV 4 WEEKS
     Route: 058
     Dates: start: 20220826

REACTIONS (4)
  - Psoriasis [Recovering/Resolving]
  - Neuropathy peripheral [Recovering/Resolving]
  - Nail infection [Recovering/Resolving]
  - Nail operation [Recovering/Resolving]

NARRATIVE: CASE EVENT DATE: 20220826
